FAERS Safety Report 25417091 (Version 1)
Quarter: 2025Q2

REPORT INFORMATION
  Report Type: Other
  Country: GB (occurrence: GB)
  Receive Date: 20250610
  Receipt Date: 20250610
  Transmission Date: 20250717
  Serious: Yes (Other)
  Sender: ASPEN
  Company Number: None

PATIENT

DRUGS (6)
  1. DEXAMETHASONE [Suspect]
     Active Substance: DEXAMETHASONE
     Indication: Adverse drug reaction
     Route: 065
     Dates: start: 20250527, end: 20250531
  2. CITALOPRAM [Concomitant]
     Active Substance: CITALOPRAM
     Indication: Adverse drug reaction
     Route: 065
  3. AMOXICILLIN [Concomitant]
     Active Substance: AMOXICILLIN
     Indication: Adverse drug reaction
     Route: 065
     Dates: start: 20250524
  4. Viviscal [Concomitant]
     Indication: Product used for unknown indication
     Route: 065
  5. VITAMIN D [Concomitant]
     Active Substance: VITAMIN D NOS
     Indication: Product used for unknown indication
     Route: 065
  6. EVENING PRIMROSE OIL\HERBALS [Concomitant]
     Active Substance: EVENING PRIMROSE OIL\HERBALS
     Indication: Product used for unknown indication
     Route: 065

REACTIONS (10)
  - Medication error [Unknown]
  - Confusional state [Recovering/Resolving]
  - Feeling of despair [Recovering/Resolving]
  - Suicidal ideation [Recovering/Resolving]
  - Paranoia [Recovered/Resolved]
  - Ageusia [Recovered/Resolved]
  - Anger [Recovered/Resolved]
  - Anxiety [Recovering/Resolving]
  - Sensory overload [Recovering/Resolving]
  - Derealisation [Recovering/Resolving]

NARRATIVE: CASE EVENT DATE: 20250530
